FAERS Safety Report 5764831-8 (Version None)
Quarter: 2008Q2

REPORT INFORMATION
  Report Type: 
  Country: None (occurrence: None)
  Receive Date: 20080611
  Receipt Date: 20080603
  Transmission Date: 20081010
  Serious: Yes (Other)
  Sender: FDA-Public Use
  Company Number: DE-BAYER-200819772GPV

PATIENT
  Age: 67 Year
  Sex: Female

DRUGS (1)
  1. MAGNEVIST [Suspect]
     Indication: DRUG USE FOR UNKNOWN INDICATION
     Route: 042
     Dates: start: 20080603, end: 20080603

REACTIONS (4)
  - CARDIOVASCULAR DISORDER [None]
  - CHILLS [None]
  - HYPOAESTHESIA ORAL [None]
  - NAUSEA [None]
